FAERS Safety Report 10086223 (Version 2)
Quarter: 2014Q2

REPORT INFORMATION
  Report Type: Spontaneous
  Country: US (occurrence: IT)
  Receive Date: 20140418
  Receipt Date: 20140522
  Transmission Date: 20141212
  Serious: No
  Sender: FDA-Public Use
  Company Number: IT-FRI-1000066524

PATIENT
  Age: 47 Year
  Sex: Male

DRUGS (5)
  1. ASENAPINE [Suspect]
     Indication: BIPOLAR DISORDER
     Dosage: 2.5 MG
     Route: 048
     Dates: start: 20140314, end: 20140328
  2. ASENAPINE [Suspect]
     Indication: BIPOLAR DISORDER
     Dosage: 5 MG
     Route: 060
     Dates: start: 20140329, end: 20140329
  3. TAVOR [Concomitant]
     Indication: INSOMNIA
     Dates: start: 20140306
  4. SERENASE [Concomitant]
     Indication: DELIRIUM
     Dosage: 2 MG/ML
     Dates: start: 20140306
  5. TRITTICO [Concomitant]
     Dosage: 25 MG/ML
     Dates: start: 20140306

REACTIONS (5)
  - Urticaria [Recovering/Resolving]
  - Agitation [Unknown]
  - Insomnia [Unknown]
  - Sedation [Unknown]
  - Off label use [Recovered/Resolved]
